FAERS Safety Report 10744473 (Version 4)
Quarter: 2015Q2

REPORT INFORMATION
  Report Type: Spontaneous
  Country: US (occurrence: US)
  Receive Date: 20150128
  Receipt Date: 20150406
  Transmission Date: 20150821
  Serious: Yes (Other)
  Sender: FDA-Public Use
  Company Number: US-UNITED THERAPEUTICS-UNT-2014-012815

PATIENT
  Age: 54 Year
  Sex: Female
  Weight: 104.31 kg

DRUGS (6)
  1. ORENITRAM [Suspect]
     Active Substance: TREPROSTINIL
     Dosage: 8 MG, Q8H
     Route: 048
     Dates: start: 20141208
  2. WARFARIN [Concomitant]
     Active Substance: WARFARIN
     Indication: PRODUCT USED FOR UNKNOWN INDICATION
  3. ORENITRAM [Suspect]
     Active Substance: TREPROSTINIL
     Dosage: 8 MG, Q8H
     Route: 048
     Dates: start: 20141204
  4. ADCIRCA [Concomitant]
     Active Substance: TADALAFIL
     Indication: PRODUCT USED FOR UNKNOWN INDICATION
  5. ORENITRAM [Suspect]
     Active Substance: TREPROSTINIL
     Indication: PULMONARY ARTERIAL HYPERTENSION
     Dosage: 8 MG, Q8H
     Route: 048
     Dates: start: 20130529
  6. ORENITRAM [Suspect]
     Active Substance: TREPROSTINIL
     Dosage: 8 MG, Q8H
     Route: 048
     Dates: start: 20141208

REACTIONS (18)
  - Vomiting [Unknown]
  - Flushing [Unknown]
  - Nausea [Recovering/Resolving]
  - Ear congestion [Unknown]
  - Fatigue [Unknown]
  - Constipation [Unknown]
  - Dizziness [Unknown]
  - Palpitations [Unknown]
  - Dyspnoea [Unknown]
  - Nasal congestion [Unknown]
  - Oedema [Recovering/Resolving]
  - Pain [Unknown]
  - Mental impairment [Unknown]
  - Rhinorrhoea [Unknown]
  - Pain in extremity [Unknown]
  - Chills [Unknown]
  - Body temperature abnormal [Unknown]
  - International normalised ratio increased [Unknown]

NARRATIVE: CASE EVENT DATE: 201412
